FAERS Safety Report 16237446 (Version 1)
Quarter: 2019Q2

REPORT INFORMATION
  Report Type: Spontaneous
  Country: US (occurrence: US)
  Receive Date: 20190425
  Receipt Date: 20190425
  Transmission Date: 20190711
  Serious: No
  Sender: FDA-Public Use
  Company Number: US-HETERO CORPORATE-HET2019US00289

PATIENT
  Age: 67 Year
  Sex: Male
  Weight: 138 kg

DRUGS (1)
  1. LOSARTAN. [Suspect]
     Active Substance: LOSARTAN
     Indication: HYPERTENSION
     Dosage: 100 MG
     Dates: start: 20190221

REACTIONS (2)
  - Nasal congestion [Unknown]
  - Headache [Unknown]

NARRATIVE: CASE EVENT DATE: 20190223
